FAERS Safety Report 8607413-2 (Version None)
Quarter: 2012Q3

REPORT INFORMATION
  Report Type: 
  Country: None (occurrence: None)
  Receive Date: 20120821
  Receipt Date: 20120809
  Transmission Date: 20120928
  Serious: Yes (Other)
  Sender: FDA-Public Use
  Company Number: US-SANOFI-AVENTIS-2012SA047691

PATIENT
  Age: 37 Year
  Sex: Male
  Weight: 152.6 kg

DRUGS (84)
  1. HUMALOG [Suspect]
     Dates: start: 20120331, end: 20120331
  2. HUMALOG [Suspect]
     Dates: start: 20120408, end: 20120408
  3. HUMALOG [Suspect]
     Dates: start: 20120502, end: 20120502
  4. HUMALOG [Suspect]
     Dates: start: 20120509, end: 20120509
  5. HUMALOG [Suspect]
     Dates: start: 20120520, end: 20120520
  6. HUMALOG [Suspect]
     Dates: start: 20120531, end: 20120531
  7. HUMALOG [Suspect]
     Dates: start: 20120603, end: 20120603
  8. HUMALOG [Suspect]
     Dates: start: 20120608, end: 20120608
  9. HUMALOG [Suspect]
     Dates: start: 20120609, end: 20120609
  10. CHONDROITIN W/GLUCOSAMINE [Concomitant]
     Route: 048
     Dates: start: 20110101
  11. LANTUS [Suspect]
     Indication: TYPE 2 DIABETES MELLITUS
     Dates: start: 20120329, end: 20120402
  12. LANTUS [Suspect]
     Dates: start: 20120428, end: 20120502
  13. LANTUS [Suspect]
     Dates: start: 20120510, end: 20120511
  14. HUMALOG [Suspect]
     Dates: start: 20120403, end: 20120403
  15. HUMALOG [Suspect]
     Dates: start: 20120413, end: 20120413
  16. HUMALOG [Suspect]
     Dates: start: 20120414, end: 20120414
  17. HUMALOG [Suspect]
     Dates: start: 20120416, end: 20120416
  18. HUMALOG [Suspect]
     Dates: start: 20120421, end: 20120421
  19. HUMALOG [Suspect]
     Dates: start: 20120428, end: 20120428
  20. HUMALOG [Suspect]
     Dates: start: 20120503, end: 20120503
  21. HUMALOG [Suspect]
     Dates: start: 20120506, end: 20120506
  22. HUMALOG [Suspect]
     Dates: start: 20120513, end: 20120513
  23. HUMALOG [Suspect]
     Dates: start: 20120514, end: 20120514
  24. HUMALOG [Suspect]
     Dates: start: 20120516, end: 20120516
  25. HUMALOG [Suspect]
     Dates: start: 20120521, end: 20120521
  26. HUMALOG [Suspect]
     Dates: start: 20120528, end: 20120528
  27. HUMALOG [Suspect]
     Dates: start: 20120529, end: 20120529
  28. HUMALOG [Suspect]
     Dates: start: 20120530, end: 20120530
  29. HUMALOG [Suspect]
     Dates: start: 20120606, end: 20120606
  30. HUMALOG [Suspect]
     Dates: start: 20120610, end: 20120610
  31. MULTI-VITAMINS [Concomitant]
     Route: 048
     Dates: start: 20040101
  32. LANTUS [Suspect]
     Dates: start: 20120421, end: 20120421
  33. LANTUS [Suspect]
     Dates: start: 20120504, end: 20120507
  34. LANTUS [Suspect]
     Dates: start: 20120519, end: 20120523
  35. HUMALOG [Suspect]
     Dates: start: 20120328, end: 20120328
  36. HUMALOG [Suspect]
     Dates: start: 20120507, end: 20120507
  37. HUMALOG [Suspect]
     Dates: start: 20120510, end: 20120510
  38. HUMALOG [Suspect]
     Dates: start: 20120511, end: 20120511
  39. HUMALOG [Suspect]
     Dates: start: 20120519, end: 20120519
  40. HUMALOG [Suspect]
     Dates: start: 20120605, end: 20120605
  41. FISH OIL [Concomitant]
     Route: 048
     Dates: start: 20070101
  42. LANTUS [Suspect]
     Dates: start: 20120513, end: 20120517
  43. HUMALOG [Suspect]
     Dates: start: 20120327, end: 20120327
  44. HUMALOG [Suspect]
     Dates: start: 20120410, end: 20120410
  45. HUMALOG [Suspect]
     Dates: start: 20120427, end: 20120427
  46. HUMALOG [Suspect]
     Dates: start: 20120505, end: 20120505
  47. HUMALOG [Suspect]
     Dates: start: 20120523, end: 20120523
  48. HUMALOG [Suspect]
     Dates: start: 20120607, end: 20120607
  49. PRASTERONE [Concomitant]
     Route: 048
     Dates: start: 20030101
  50. LANTUS [Concomitant]
     Route: 058
     Dates: start: 20090101
  51. HUMALOG [Suspect]
     Dates: start: 20120404, end: 20120404
  52. HUMALOG [Suspect]
     Dates: start: 20120525, end: 20120525
  53. HUMALOG [Suspect]
     Dates: start: 20120526, end: 20120526
  54. HUMALOG [Suspect]
     Dates: start: 20120602, end: 20120602
  55. LANTUS [Suspect]
     Dates: start: 20120423, end: 20120425
  56. HUMALOG [Suspect]
     Dates: start: 20120419, end: 20120419
  57. HUMALOG [Suspect]
     Dates: start: 20120423, end: 20120423
  58. HUMALOG [Suspect]
     Dates: start: 20120430, end: 20120430
  59. HUMALOG [Suspect]
     Dates: start: 20120524, end: 20120524
  60. HUMALOG [Suspect]
     Dates: start: 20120601, end: 20120601
  61. HUMALOG [Concomitant]
     Route: 058
     Dates: start: 20111001
  62. LANTUS [Suspect]
     Dates: start: 20120405, end: 20120410
  63. LANTUS [Suspect]
     Dates: start: 20120415, end: 20120419
  64. LANTUS [Suspect]
     Dates: start: 20120509, end: 20120509
  65. HUMALOG [Suspect]
     Dates: start: 20120401, end: 20120401
  66. HUMALOG [Suspect]
     Dates: start: 20120409, end: 20120409
  67. HUMALOG [Suspect]
     Dates: start: 20120415, end: 20120415
  68. HUMALOG [Suspect]
     Dates: start: 20120417, end: 20120417
  69. HUMALOG [Suspect]
     Dates: start: 20120418, end: 20120418
  70. HUMALOG [Suspect]
     Dates: start: 20120422, end: 20120422
  71. HUMALOG [Suspect]
     Dates: start: 20120512, end: 20120512
  72. HUMALOG [Suspect]
     Dates: start: 20120515, end: 20120515
  73. HUMALOG [Suspect]
     Dates: start: 20120522, end: 20120522
  74. HUMALOG [Suspect]
     Dates: start: 20120527, end: 20120527
  75. FLUOXETINE HCL [Concomitant]
     Route: 048
     Dates: start: 20090101
  76. LANTUS [Suspect]
     Dates: start: 20120526, end: 20120607
  77. HUMALOG [Suspect]
     Dates: start: 20120330, end: 20120330
  78. HUMALOG [Suspect]
     Dates: start: 20120402, end: 20120402
  79. HUMALOG [Suspect]
     Dates: start: 20120407, end: 20120407
  80. HUMALOG [Suspect]
     Dates: start: 20120424, end: 20120424
  81. HUMALOG [Suspect]
     Dates: start: 20120501, end: 20120501
  82. HUMALOG [Suspect]
     Dates: start: 20120508, end: 20120508
  83. HUMALOG [Suspect]
     Dates: start: 20120517, end: 20120517
  84. HUMALOG [Suspect]
     Dates: start: 20120604, end: 20120604

REACTIONS (1)
  - HYPOGLYCAEMIC UNCONSCIOUSNESS [None]
